FAERS Safety Report 4268799-5 (Version None)
Quarter: 2004Q1

REPORT INFORMATION
  Report Type: 
  Country: None (occurrence: None)
  Receive Date: 20040112
  Receipt Date: 20040112
  Transmission Date: 20041129
  Serious: Yes (Life-Threatening)
  Sender: FDA-Public Use
  Company Number: None

PATIENT
  Age: 45 Year
  Sex: Male
  Weight: 111.1313 kg

DRUGS (1)
  1. TEQUIN [Suspect]
     Dosage: 1- TABLET PER DAY ORAL
     Route: 048
     Dates: start: 20030317, end: 20030320

REACTIONS (4)
  - ANXIETY [None]
  - DEPRESSION [None]
  - FEELING ABNORMAL [None]
  - IMPAIRED WORK ABILITY [None]
